FAERS Safety Report 5409032-8 (Version None)
Quarter: 2007Q3

REPORT INFORMATION
  Report Type: 
  Country: None (occurrence: None)
  Receive Date: 20070806
  Receipt Date: 20070629
  Transmission Date: 20080115
  Serious: Yes (Hospitalization)
  Sender: FDA-Public Use
  Company Number: CIP07001488

PATIENT
  Sex: Female

DRUGS (2)
  1. ACTONEL [Suspect]
     Indication: OSTEOPOROSIS
  2. CALCIUM+VIT D /00944201/ (CALCIUM CARBONATE, COLECALCIFEROL) 500MG [Suspect]
     Dosage: 1500 MG, DAILY : 1000 MG DAILY
     Dates: end: 20000101

REACTIONS (2)
  - DYSPEPSIA [None]
  - NEPHROLITHIASIS [None]
